FAERS Safety Report 4388847-1 (Version None)
Quarter: 2004Q2

REPORT INFORMATION
  Report Type: 
  Country: None (occurrence: None)
  Receive Date: 20040624
  Receipt Date: 20040616
  Transmission Date: 20050107
  Serious: Yes (Life-Threatening, Hospitalization, Other)
  Sender: FDA-Public Use
  Company Number: ES-2004-027068

PATIENT
  Age: 67 Year
  Sex: Female
  Weight: 65 kg

DRUGS (6)
  1. FLUDARABINE PHOSPHATE [Suspect]
     Indication: LYMPHOPROLIFERATIVE DISORDER
     Dosage: 25  MG/M2, INTRAVENOUS
     Route: 042
     Dates: start: 20020926, end: 20020930
  2. FLUDARABINE PHOSPHATE [Suspect]
     Indication: PROLYMPHOCYTIC LEUKAEMIA
     Dosage: 25  MG/M2, INTRAVENOUS
     Route: 042
     Dates: start: 20020926, end: 20020930
  3. MITOXANTRONE [Concomitant]
  4. GENOXAL [Concomitant]
  5. EMCONCOR (BISOPROLOL FUMARATE) [Concomitant]
  6. RAMIPRIL [Concomitant]

REACTIONS (1)
  - PANCREATITIS ACUTE [None]
